FAERS Safety Report 7232411-3 (Version None)
Quarter: 2011Q1

REPORT INFORMATION
  Report Type: 
  Country: None (occurrence: None)
  Receive Date: 20110119
  Receipt Date: 20110112
  Transmission Date: 20110831
  Serious: No
  Sender: FDA-Public Use
  Company Number: US-PFIZER INC-2011008845

PATIENT
  Sex: Male
  Weight: 95.238 kg

DRUGS (6)
  1. LISINOPRIL [Concomitant]
     Indication: HYPERTENSION
     Dosage: 20 MG, 1X/DAY
     Route: 048
  2. METOPROLOL [Concomitant]
     Indication: HYPERTENSION
     Dosage: 50 MG, 1X/DAY
     Route: 048
  3. VIAGRA [Suspect]
     Indication: ERECTILE DYSFUNCTION
     Dosage: 25 MG, 2X/WEEK
     Route: 048
     Dates: start: 20100501
  4. TAMSULOSIN HYDROCHLORIDE [Concomitant]
     Indication: MICTURITION DISORDER
  5. TAMSULOSIN HYDROCHLORIDE [Concomitant]
     Indication: BLADDER DISORDER
     Dosage: 0.4 MG, 1X/DAY
     Route: 048
  6. RANITIDINE [Concomitant]
     Indication: GASTROOESOPHAGEAL REFLUX DISEASE
     Dosage: 150 MG, 1X/DAY
     Route: 048

REACTIONS (2)
  - EJACULATION FAILURE [None]
  - ANORGASMIA [None]
